FAERS Safety Report 9160075 (Version 1)
Quarter: 2013Q1

REPORT INFORMATION
  Report Type: Spontaneous
  Country: DE (occurrence: DE)
  Receive Date: 20130313
  Receipt Date: 20130313
  Transmission Date: 20140127
  Serious: Yes (Other)
  Sender: FDA-Public Use
  Company Number: DE-PFIZER INC-2013083910

PATIENT
  Age: 75 Year
  Sex: Female

DRUGS (3)
  1. AMIODARONE HCL [Suspect]
     Indication: ARRHYTHMIA
     Dosage: UNK
     Route: 065
     Dates: start: 201302
  2. NITRENDIPINE [Concomitant]
     Dosage: UNK
  3. KELTICAN N [Concomitant]
     Dosage: UNK

REACTIONS (1)
  - Polyneuropathy [Unknown]
